FAERS Safety Report 13573684 (Version 1)
Quarter: 2017Q2

REPORT INFORMATION
  Report Type: Spontaneous
  Country: US (occurrence: US)
  Receive Date: 20170523
  Receipt Date: 20170523
  Transmission Date: 20170830
  Serious: Yes (Other)
  Sender: FDA-Public Use
  Company Number: None

PATIENT
  Age: 34 Year
  Sex: Male
  Weight: 81.72 kg

DRUGS (19)
  1. OXYTROL [Suspect]
     Active Substance: OXYBUTYNIN
     Indication: HYPERTONIC BLADDER
     Route: 048
     Dates: start: 20050222, end: 20100713
  2. SANCTURA [Suspect]
     Active Substance: TROSPIUM CHLORIDE
     Indication: HYPERTONIC BLADDER
     Route: 048
     Dates: start: 20050222, end: 20100713
  3. IMIPRAMINE 75 MG GENERIC [Suspect]
     Active Substance: IMIPRAMINE
     Indication: HYPERTONIC BLADDER
     Route: 048
     Dates: start: 20050222, end: 20100713
  4. DEXILANT [Concomitant]
     Active Substance: DEXLANSOPRAZOLE
  5. BUSPAR [Concomitant]
     Active Substance: BUSPIRONE HYDROCHLORIDE
  6. FLONASE [Concomitant]
     Active Substance: FLUTICASONE PROPIONATE
  7. GINKGO [Concomitant]
     Active Substance: GINKGO
  8. TUMS [Concomitant]
     Active Substance: CALCIUM CARBONATE
  9. MULTI VITAMIN [Concomitant]
     Active Substance: VITAMINS
  10. VITAMIN B6 + MAGNESIUM [Concomitant]
  11. DETROL [Suspect]
     Active Substance: TOLTERODINE TARTRATE
     Indication: HYPERTONIC BLADDER
     Route: 048
     Dates: start: 20050222, end: 20100713
  12. ENABLEX [Suspect]
     Active Substance: DARIFENACIN HYDROBROMIDE
     Indication: HYPERTONIC BLADDER
     Route: 048
     Dates: start: 20050222, end: 20100713
  13. FLAVOXATE 25MG [Suspect]
     Active Substance: FLAVOXATE
     Indication: HYPERTONIC BLADDER
     Route: 048
     Dates: start: 20050222, end: 20100713
  14. DITROPAN [Suspect]
     Active Substance: OXYBUTYNIN CHLORIDE
     Indication: HYPERTONIC BLADDER
     Route: 048
     Dates: start: 20050222, end: 20100713
  15. HYDROXYZINE [Concomitant]
     Active Substance: HYDROXYZINE HYDROCHLORIDE
  16. GINSENG [Concomitant]
     Active Substance: ASIAN GINSENG
  17. MAGNESIUM [Concomitant]
     Active Substance: MAGNESIUM
  18. VESICARE [Suspect]
     Active Substance: SOLIFENACIN SUCCINATE
     Indication: HYPERTONIC BLADDER
     Route: 048
     Dates: start: 20050222, end: 20100713
  19. NEXIUM [Concomitant]
     Active Substance: ESOMEPRAZOLE MAGNESIUM

REACTIONS (3)
  - Mental impairment [None]
  - Delirium [None]
  - Dementia [None]

NARRATIVE: CASE EVENT DATE: 20050224
